FAERS Safety Report 4967128-9 (Version None)
Quarter: 2006Q2

REPORT INFORMATION
  Report Type: 
  Country: None (occurrence: None)
  Receive Date: 20060404
  Receipt Date: 20060320
  Transmission Date: 20061013
  Serious: Yes (Hospitalization)
  Sender: FDA-Public Use
  Company Number: GXKR2006US01796

PATIENT
  Age: 20 Year
  Sex: Male
  Weight: 66 kg

DRUGS (6)
  1. ITRACONAZOLE [Suspect]
     Indication: ANTIFUNGAL PROPHYLAXIS
     Dosage: 200 MG, BID, ORAL
     Route: 048
  2. TACROLIMUS (TACROLIUMS) [Suspect]
     Dosage: 3 MG, BID, ORAL
     Route: 048
  3. CYCLOSPORINE [Concomitant]
  4. RANITIDINE [Concomitant]
  5. PENTAMIDINE (PENTAMIDINE) INHALER [Concomitant]
  6. VALGANCICLOVIR (VALGANCICLOVIR) [Concomitant]

REACTIONS (17)
  - ABDOMINAL PAIN LOWER [None]
  - ABDOMINAL PAIN UPPER [None]
  - ADENOVIRUS INFECTION [None]
  - BK VIRUS INFECTION [None]
  - BLADDER HYPERTROPHY [None]
  - GINGIVAL HYPERPLASIA [None]
  - HAEMATURIA [None]
  - HYDRONEPHROSIS [None]
  - NEPHROPATHY TOXIC [None]
  - ORGAN FAILURE [None]
  - PANCYTOPENIA [None]
  - PYURIA [None]
  - THROMBOTIC THROMBOCYTOPENIC PURPURA [None]
  - URETERITIS [None]
  - URETHRITIS [None]
  - VIRUS URINE TEST POSITIVE [None]
  - VOMITING [None]
